FAERS Safety Report 6984884-9 (Version None)
Quarter: 2010Q3

REPORT INFORMATION
  Report Type: 
  Country: None (occurrence: None)
  Receive Date: 20100915
  Receipt Date: 20100906
  Transmission Date: 20110219
  Serious: Yes (Death)
  Sender: FDA-Public Use
  Company Number: US-PFIZER INC-2010115167

PATIENT

DRUGS (4)
  1. CEFAZOLIN [Suspect]
     Route: 064
  2. AMPICILLIN SODIUM/SULBACTAM SODIUM [Suspect]
     Indication: BACTERIAL DISEASE CARRIER
     Route: 064
  3. AMOXICILLIN TRIHYDRATE [Suspect]
     Route: 064
  4. ERYTHROMYCIN [Suspect]
     Route: 064

REACTIONS (4)
  - BACTERAEMIA [None]
  - BETA HAEMOLYTIC STREPTOCOCCAL INFECTION [None]
  - DRUG EXPOSURE DURING PREGNANCY [None]
  - PNEUMONIA KLEBSIELLA [None]
